FAERS Safety Report 9112884 (Version 1)
Quarter: 2013Q1

REPORT INFORMATION
  Report Type: Spontaneous
  Country: US (occurrence: US)
  Receive Date: 20130211
  Receipt Date: 20130211
  Transmission Date: 20140127
  Serious: No
  Sender: FDA-Public Use
  Company Number: US-PFIZER INC-2013049928

PATIENT
  Sex: Female
  Weight: 65.76 kg

DRUGS (2)
  1. PANTOPRAZOLE [Suspect]
     Indication: GASTROOESOPHAGEAL REFLUX DISEASE
     Dosage: UNK
  2. PREMARIN [Concomitant]
     Indication: HOT FLUSH
     Dosage: 1.25 MG, UNK
     Route: 048

REACTIONS (3)
  - Paraesthesia oral [Unknown]
  - Dyspnoea [Unknown]
  - Dizziness [Unknown]
